FAERS Safety Report 5454398-6 (Version None)
Quarter: 2007Q3

REPORT INFORMATION
  Report Type: 
  Country: None (occurrence: None)
  Receive Date: 20070917
  Receipt Date: 20060801
  Transmission Date: 20080115
  Serious: No
  Sender: FDA-Public Use
  Company Number: US-ASTRAZENECA-2006UW15443

PATIENT
  Age: 61 Year
  Sex: Male
  Weight: 83.9 kg

DRUGS (6)
  1. SEROQUEL [Suspect]
     Indication: SCHIZOAFFECTIVE DISORDER
     Dosage: 50 MG- 100 MG
     Route: 048
  2. SEROQUEL [Suspect]
     Indication: ANXIETY
     Dosage: 50 MG- 100 MG
     Route: 048
  3. SEROQUEL [Suspect]
     Indication: INSOMNIA
     Dosage: 50 MG- 100 MG
     Route: 048
  4. GEMFIBROZIL [Concomitant]
  5. FLOMAX [Concomitant]
  6. VITAMINS [Concomitant]

REACTIONS (4)
  - ANXIETY [None]
  - CONFUSIONAL STATE [None]
  - DEPRESSION [None]
  - FEELING ABNORMAL [None]
